FAERS Safety Report 11548295 (Version 1)
Quarter: 2015Q3

REPORT INFORMATION
  Report Type: Spontaneous
  Country: AU (occurrence: AU)
  Receive Date: 20150924
  Receipt Date: 20150924
  Transmission Date: 20151125
  Serious: Yes (Other)
  Sender: FDA-Public Use
  Company Number: AU-BAXTER-2015BAX051642

PATIENT
  Age: 18 Year
  Sex: Female

DRUGS (5)
  1. ENDOXAN CYCLOPHOSPHAMIDE 1G (AS MONOHYDRATE) POWDER FOR INJECTION VIAL [Suspect]
     Active Substance: CYCLOPHOSPHAMIDE
     Indication: BONE MARROW CONDITIONING REGIMEN
     Route: 065
     Dates: start: 201410, end: 201412
  2. FLUDARABINE [Suspect]
     Active Substance: FLUDARABINE PHOSPHATE
     Indication: LEUKAEMIC INFILTRATION EXTRAMEDULLARY
     Dosage: MID
     Route: 065
     Dates: start: 201505
  3. CYTARABINE. [Suspect]
     Active Substance: CYTARABINE
     Indication: LEUKAEMIC INFILTRATION EXTRAMEDULLARY
     Dosage: MID
     Route: 065
     Dates: start: 201505
  4. IDARUBICIN [Suspect]
     Active Substance: IDARUBICIN
     Indication: LEUKAEMIC INFILTRATION EXTRAMEDULLARY
     Dosage: MID
     Route: 065
     Dates: start: 201505
  5. G-CSF [Suspect]
     Active Substance: GRANULOCYTE COLONY-STIMULATING FACTOR NOS
     Indication: LEUKAEMIC INFILTRATION EXTRAMEDULLARY
     Route: 065
     Dates: start: 201505

REACTIONS (6)
  - Refractory cancer [Unknown]
  - Leukaemic infiltration extramedullary [Unknown]
  - Leukaemia recurrent [Unknown]
  - Mucosal inflammation [Unknown]
  - Thrombocytopenia [Unknown]
  - Anaemia [Unknown]

NARRATIVE: CASE EVENT DATE: 201505
